FAERS Safety Report 17129866 (Version 1)
Quarter: 2019Q4

REPORT INFORMATION
  Report Type: Report from Study
  Country: DE (occurrence: DE)
  Receive Date: 20191209
  Receipt Date: 20191209
  Transmission Date: 20200122
  Serious: Yes (Hospitalization)
  Sender: FDA-Public Use
  Company Number: DE-PFIZER INC-2019521954

PATIENT
  Age: 56 Year
  Sex: Female

DRUGS (5)
  1. PYRIDOSTIGMINE [Suspect]
     Active Substance: PYRIDOSTIGMINE
     Dosage: 30 MG, 3X/DAY
     Route: 065
     Dates: start: 20170717
  2. PYRIDOSTIGMINE [Suspect]
     Active Substance: PYRIDOSTIGMINE
     Indication: MYASTHENIC SYNDROME
     Dosage: 90 MG, 2X/DAY
     Route: 065
     Dates: start: 20151012, end: 20171005
  3. FIRDAPSE [Suspect]
     Active Substance: AMIFAMPRIDINE
     Indication: MYASTHENIC SYNDROME
     Dosage: 10 MG, 1X/DAY
     Route: 048
     Dates: start: 20140604
  4. METHOTREXATE SODIUM. [Suspect]
     Active Substance: METHOTREXATE SODIUM
     Indication: MYASTHENIC SYNDROME
     Dosage: 10 MG, WEEKLY
     Route: 048
     Dates: start: 20150615, end: 20190404
  5. FIRDAPSE [Suspect]
     Active Substance: AMIFAMPRIDINE
     Dosage: 60 MG, 1X/DAY
     Route: 048
     Dates: start: 20180130

REACTIONS (3)
  - Intervertebral discitis [Recovered/Resolved]
  - Product use in unapproved indication [Unknown]
  - Off label use [Unknown]

NARRATIVE: CASE EVENT DATE: 20190404
